FAERS Safety Report 23488553 (Version 1)
Quarter: 2024Q1

REPORT INFORMATION
  Report Type: Spontaneous
  Country: US (occurrence: US)
  Receive Date: 20240206
  Receipt Date: 20240206
  Transmission Date: 20240410
  Serious: Yes (Other)
  Sender: FDA-Public Use
  Company Number: US-SA-SAC20240202001237

PATIENT
  Age: 35 Year
  Sex: Male

DRUGS (1)
  1. TZIELD [Suspect]
     Active Substance: TEPLIZUMAB-MZWV
     Indication: Diabetes mellitus
     Dosage: UNK
     Route: 042
     Dates: start: 20240120, end: 20240130

REACTIONS (1)
  - Lymphopenia [Unknown]

NARRATIVE: CASE EVENT DATE: 20240128
